FAERS Safety Report 6731714-6 (Version None)
Quarter: 2010Q2

REPORT INFORMATION
  Report Type: 
  Country: None (occurrence: None)
  Receive Date: 20100518
  Receipt Date: 20100518
  Transmission Date: 20101027
  Serious: No
  Sender: FDA-Public Use
  Company Number: None

PATIENT
  Age: 5 Month
  Sex: Male
  Weight: 74.8435 kg

DRUGS (1)
  1. LIPITOR [Suspect]
     Indication: BLOOD CHOLESTEROL
     Dosage: 10MG  1 PER DAY PO
     Route: 048
     Dates: start: 20050101, end: 20100101

REACTIONS (8)
  - AMNESIA [None]
  - ARTHRALGIA [None]
  - DEPRESSION [None]
  - HEADACHE [None]
  - INJURY [None]
  - MUSCLE RUPTURE [None]
  - MYALGIA [None]
  - NECK PAIN [None]
